FAERS Safety Report 24883606 (Version 1)
Quarter: 2025Q1

REPORT INFORMATION
  Report Type: Spontaneous
  Country: US (occurrence: US)
  Receive Date: 20250124
  Receipt Date: 20250124
  Transmission Date: 20250409
  Serious: Yes (Other)
  Sender: MERCK
  Company Number: US-009507513-2501USA005958

PATIENT
  Sex: Female

DRUGS (4)
  1. KEYTRUDA [Suspect]
     Active Substance: PEMBROLIZUMAB
     Indication: Endometrial cancer
     Route: 042
     Dates: start: 2024, end: 20240829
  2. CRESTOR [Concomitant]
     Active Substance: ROSUVASTATIN CALCIUM
  3. LOSARTAN [Concomitant]
     Active Substance: LOSARTAN
  4. ELIQUIS [Concomitant]
     Active Substance: APIXABAN

REACTIONS (5)
  - Hypothalamo-pituitary disorder [Unknown]
  - Radiotherapy [Recovered/Resolved]
  - Blood sodium decreased [Unknown]
  - Blood electrolytes abnormal [Unknown]
  - Eye disorder [Recovered/Resolved]

NARRATIVE: CASE EVENT DATE: 20240101
